FAERS Safety Report 15604611 (Version 1)
Quarter: 2018Q4

REPORT INFORMATION
  Report Type: Spontaneous
  Country: US (occurrence: US)
  Receive Date: 20181110
  Receipt Date: 20181110
  Transmission Date: 20190205
  Serious: No
  Sender: FDA-Public Use
  Company Number: US-009507513-1810USA007030

PATIENT
  Sex: Male

DRUGS (2)
  1. ASMANEX [Suspect]
     Active Substance: MOMETASONE FUROATE
     Dosage: 110 MCG TWO PUFFS ONCE DAILY READ 30 INITIALLY, SKIPPED TO 39 AND COUNTING DOWN WITH EACH DOSE.
     Route: 048
     Dates: start: 201805
  2. ASMANEX [Suspect]
     Active Substance: MOMETASONE FUROATE
     Dosage: 220 MCG TWO PUFF ONCE DAILY RECEIVED TEN DOSES AND GOT STUCK ON NUMBER ^28^
     Dates: start: 2018

REACTIONS (5)
  - Poor quality device used [Unknown]
  - Product availability issue [Unknown]
  - Product quality issue [Unknown]
  - Product dose omission [Unknown]
  - No adverse event [Unknown]

NARRATIVE: CASE EVENT DATE: 2018
